FAERS Safety Report 10442831 (Version 1)
Quarter: 2014Q3

REPORT INFORMATION
  Report Type: Spontaneous
  Country: US (occurrence: US)
  Receive Date: 20140909
  Receipt Date: 20140909
  Transmission Date: 20150326
  Serious: Yes (Hospitalization)
  Sender: FDA-Public Use
  Company Number: US-MYLAN-2014M1003925

PATIENT

DRUGS (5)
  1. ONDANSETRON [Concomitant]
     Active Substance: ONDANSETRON
     Route: 065
  2. GLUCOSE [Concomitant]
     Active Substance: DEXTROSE
     Route: 065
  3. CALCIUM GLUCONATE. [Concomitant]
     Active Substance: CALCIUM GLUCONATE
     Route: 065
  4. FOMEPIZOLE. [Suspect]
     Active Substance: FOMEPIZOLE
     Indication: POISONING
     Dosage: 15MG/KG OVER 30MINS
     Route: 042
  5. INSULIN                            /01223201/ [Concomitant]
     Route: 065

REACTIONS (1)
  - Anaphylactic reaction [Recovering/Resolving]
